FAERS Safety Report 8590065 (Version 3)
Quarter: 2013Q4

REPORT INFORMATION
  Report Type: Spontaneous
  Country: US (occurrence: US)
  Receive Date: 20120601
  Receipt Date: 20131128
  Transmission Date: 20140711
  Serious: Yes (Hospitalization, Disabling)
  Sender: FDA-Public Use
  Company Number: US-ASTRAZENECA-2012SE34613

PATIENT
  Age: 679 Month
  Sex: Female

DRUGS (12)
  1. NEXIUM [Suspect]
     Indication: GASTROOESOPHAGEAL REFLUX DISEASE
     Route: 048
     Dates: start: 20051105, end: 200811
  2. NEXIUM [Suspect]
     Indication: GASTROOESOPHAGEAL REFLUX DISEASE
     Route: 048
     Dates: start: 20080722
  3. PREVACID [Concomitant]
     Dosage: DAILY
  4. COD LIVER [Concomitant]
  5. VITAMINS [Concomitant]
  6. TUMS [Concomitant]
     Indication: SUPPLEMENTATION THERAPY
     Dates: start: 20080317
  7. TAGAMET [Concomitant]
     Indication: GASTROOESOPHAGEAL REFLUX DISEASE
     Dates: start: 20080317
  8. VITAMIN B12 [Concomitant]
     Dates: start: 20080317
  9. NORCO [Concomitant]
     Indication: PAIN
     Dosage: 25/325 1 TO 2 TABS EVERY 4 TO 6 HOURS AS NEEDED
     Dates: start: 20080317
  10. KEFLEX [Concomitant]
     Dates: start: 20080317
  11. LODINE [Concomitant]
     Dates: start: 20080317
  12. MIRALAX [Concomitant]
     Dosage: 17 GM AT NIGHT
     Dates: start: 20060215

REACTIONS (5)
  - Rotator cuff syndrome [Unknown]
  - Impaired work ability [Unknown]
  - Osteoporosis [Unknown]
  - Multiple fractures [Unknown]
  - Spinal osteoarthritis [Unknown]
